FAERS Safety Report 25417126 (Version 2)
Quarter: 2025Q2

REPORT INFORMATION
  Report Type: Spontaneous
  Country: US (occurrence: US)
  Receive Date: 20250610
  Receipt Date: 20250626
  Transmission Date: 20250716
  Serious: Yes (Other)
  Sender: UCB
  Company Number: US-UCBSA-2025033273

PATIENT
  Age: 19 Year
  Sex: Male
  Weight: 62.7 kg

DRUGS (11)
  1. VIMPAT [Suspect]
     Active Substance: LACOSAMIDE
     Indication: Seizure
     Dosage: 200 MILLIGRAM, 2X/DAY (BID)
  2. ADDERALL [Suspect]
     Active Substance: AMPHETAMINE ASPARTATE\AMPHETAMINE SULFATE\DEXTROAMPHETAMINE SACCHARATE\DEXTROAMPHETAMINE SULFATE
     Indication: Product used for unknown indication
  3. STRATTERA [Concomitant]
     Active Substance: ATOMOXETINE HYDROCHLORIDE
     Indication: Product used for unknown indication
     Route: 048
     Dates: start: 20241227, end: 20250602
  4. BRIVIACT [Concomitant]
     Active Substance: BRIVARACETAM
     Indication: Seizure
     Dosage: 50 MILLIGRAM, 2X/DAY (BID)
     Route: 048
     Dates: start: 20250512, end: 20250516
  5. KLONOPIN [Concomitant]
     Active Substance: CLONAZEPAM
     Indication: Seizure
     Dosage: 1 MILLIGRAM, 2X/DAY (BID)
     Route: 048
     Dates: start: 20250512, end: 20250516
  6. KLONOPIN [Concomitant]
     Active Substance: CLONAZEPAM
     Route: 048
  7. DEPAKOTE ER [Concomitant]
     Active Substance: DIVALPROEX SODIUM
     Indication: Product used for unknown indication
     Dosage: 500 MILLIGRAM, ONCE DAILY (QD)
     Route: 048
     Dates: start: 20250512, end: 20250516
  8. DEPAKOTE ER [Concomitant]
     Active Substance: DIVALPROEX SODIUM
     Dosage: 500 MILLIGRAM, 2X/DAY (BID)
     Route: 048
  9. PEPCID [Concomitant]
     Active Substance: FAMOTIDINE
     Indication: Dyspepsia
     Dosage: 40 MILLIGRAM, 2X/DAY (BID)
     Dates: start: 20250203
  10. METOPROLOL TARTRATE [Concomitant]
     Active Substance: METOPROLOL TARTRATE
     Indication: Product used for unknown indication
     Route: 048
     Dates: start: 20250228
  11. DIAZEPAM [Concomitant]
     Active Substance: DIAZEPAM
     Indication: Seizure
     Route: 045
     Dates: start: 20250512, end: 20250516

REACTIONS (21)
  - Generalised tonic-clonic seizure [Not Recovered/Not Resolved]
  - Sleep disorder [Unknown]
  - Memory impairment [Unknown]
  - Postictal headache [Recovered/Resolved]
  - Aura [Unknown]
  - Vomiting [Unknown]
  - Disturbance in attention [Unknown]
  - Gastroenteritis viral [Unknown]
  - Diarrhoea [Recovered/Resolved]
  - Sinus disorder [Unknown]
  - Blood chloride increased [Unknown]
  - White blood cell count increased [Unknown]
  - Haemoglobin decreased [Unknown]
  - Carbon dioxide decreased [Unknown]
  - Amnesia [Not Recovered/Not Resolved]
  - Insomnia [Not Recovered/Not Resolved]
  - Feeling hot [Unknown]
  - Hyperhidrosis [Unknown]
  - Eating disorder [Unknown]
  - Poor quality sleep [Unknown]
  - Drug ineffective [Unknown]

NARRATIVE: CASE EVENT DATE: 20231111
